FAERS Safety Report 17106367 (Version 1)
Quarter: 2019Q4

REPORT INFORMATION
  Report Type: Report from Study
  Country: CA (occurrence: CA)
  Receive Date: 20191203
  Receipt Date: 20191203
  Transmission Date: 20200122
  Serious: Yes (Hospitalization, Other)
  Sender: FDA-Public Use
  Company Number: CA-JNJFOC-20191021290

PATIENT
  Age: 14 Year
  Sex: Female
  Weight: 75 kg

DRUGS (1)
  1. STELARA [Suspect]
     Active Substance: USTEKINUMAB
     Indication: COLITIS ULCERATIVE
     Route: 042
     Dates: start: 20191011, end: 20191011

REACTIONS (4)
  - Colectomy total [Recovering/Resolving]
  - Off label use [Unknown]
  - Product use in unapproved indication [Unknown]
  - Haematochezia [Recovering/Resolving]

NARRATIVE: CASE EVENT DATE: 20191011
